FAERS Safety Report 21388719 (Version 1)
Quarter: 2022Q3

REPORT INFORMATION
  Report Type: Spontaneous
  Country: US (occurrence: None)
  Receive Date: 20220927
  Receipt Date: 20220927
  Transmission Date: 20221026
  Serious: Yes (Hospitalization)
  Sender: FDA-Public Use
  Company Number: None

PATIENT
  Sex: Male

DRUGS (2)
  1. GLATIRAMER [Suspect]
     Active Substance: GLATIRAMER
     Indication: Multiple sclerosis
     Dosage: FREQUENCY : DAILY;?
     Route: 058
     Dates: start: 20200219
  2. GLATIRAMER [Suspect]
     Active Substance: GLATIRAMER
     Dosage: FREQUENCY : DAILY;?
     Route: 058

REACTIONS (3)
  - Accident [None]
  - Therapy interrupted [None]
  - Dizziness [None]
